FAERS Safety Report 10863926 (Version 2)
Quarter: 2015Q1

REPORT INFORMATION
  Report Type: Spontaneous
  Country: CZ (occurrence: CZ)
  Receive Date: 20150223
  Receipt Date: 20150224
  Transmission Date: 20150721
  Serious: Yes (Other)
  Sender: FDA-Public Use
  Company Number: CZ-GLAXOSMITHKLINE-CZ2015GSK018000

PATIENT
  Age: 39 Year
  Sex: Female

DRUGS (6)
  1. ZODAC [Concomitant]
  2. ANALERGIN [Concomitant]
  3. RELVARE [Suspect]
     Active Substance: FLUTICASONE FUROATE\VILANTEROL TRIFENATATE
     Indication: ASTHMA
     Dosage: UNK
     Route: 055
     Dates: start: 20150203, end: 20150206
  4. TAFEN [Concomitant]
  5. PREDNISON [Concomitant]
     Active Substance: PREDNISONE
     Indication: ASTHMA
     Dosage: 20 MG, BID
     Route: 048
     Dates: start: 20150203
  6. MONTELUKAST [Concomitant]
     Active Substance: MONTELUKAST SODIUM

REACTIONS (7)
  - Dyspnoea [Recovered/Resolved]
  - Oral pustule [Recovered/Resolved]
  - Sinus disorder [Recovered/Resolved]
  - Back pain [Recovered/Resolved]
  - Malaise [Recovered/Resolved]
  - Tonsillar disorder [Recovered/Resolved]
  - Abdominal pain [Recovered/Resolved]

NARRATIVE: CASE EVENT DATE: 20150203
